FAERS Safety Report 15763154 (Version 2)
Quarter: 2019Q1

REPORT INFORMATION
  Report Type: Spontaneous
  Country: US (occurrence: US)
  Receive Date: 20181226
  Receipt Date: 20190122
  Transmission Date: 20190417
  Serious: No
  Sender: FDA-Public Use
  Company Number: US-ASTRAZENECA-2018SF68408

PATIENT
  Age: 630 Month
  Sex: Female
  Weight: 94.8 kg

DRUGS (5)
  1. SEROQUEL [Suspect]
     Active Substance: QUETIAPINE FUMARATE
     Indication: BIPOLAR DISORDER
     Route: 048
     Dates: start: 2017
  2. TOPROL XL [Suspect]
     Active Substance: METOPROLOL SUCCINATE
     Indication: HYPERTENSION
     Route: 048
  3. BYDUREON [Suspect]
     Active Substance: EXENATIDE
     Indication: TYPE 2 DIABETES MELLITUS
     Route: 058
     Dates: start: 20181210
  4. PROZAC [Concomitant]
     Active Substance: FLUOXETINE HYDROCHLORIDE
     Indication: BIPOLAR DISORDER
     Route: 048
  5. LASIX [Concomitant]
     Active Substance: FUROSEMIDE
     Indication: DIURETIC THERAPY
     Route: 048

REACTIONS (6)
  - Intentional device misuse [Recovered/Resolved]
  - Injection site haemorrhage [Unknown]
  - Injection site extravasation [Unknown]
  - Device leakage [Unknown]
  - Blood glucose increased [Recovered/Resolved]
  - Incorrect dose administered by product [Unknown]

NARRATIVE: CASE EVENT DATE: 201812
